FAERS Safety Report 13803862 (Version 1)
Quarter: 2017Q3

REPORT INFORMATION
  Report Type: Spontaneous
  Country: US (occurrence: US)
  Receive Date: 20170728
  Receipt Date: 20170728
  Transmission Date: 20171127
  Serious: No
  Sender: FDA-Public Use
  Company Number: None

PATIENT
  Age: 44 Year
  Sex: Male
  Weight: 137.89 kg

DRUGS (1)
  1. REVATIO [Suspect]
     Active Substance: SILDENAFIL CITRATE
     Indication: ERECTILE DYSFUNCTION
     Dosage: DATES OF USE - FOR PAST 2-3 MO?DOSE - 20 MG SILDENAFIL - MAX 5 PER USE IF NECC)?
     Route: 048

REACTIONS (4)
  - Gastrointestinal disorder [None]
  - Nausea [None]
  - Erectile dysfunction [None]
  - Drug intolerance [None]
